FAERS Safety Report 25876637 (Version 1)
Quarter: 2025Q4

REPORT INFORMATION
  Report Type: Spontaneous
  Country: US (occurrence: US)
  Receive Date: 20251003
  Receipt Date: 20251003
  Transmission Date: 20260117
  Serious: Yes (Other)
  Sender: TAKEDA
  Company Number: US-TAKEDA-2025TUS083576

PATIENT
  Age: 10 Year
  Sex: Female

DRUGS (8)
  1. GAMMAGARD S/D [Suspect]
     Active Substance: HUMAN IMMUNOGLOBULIN G
     Indication: Hypogammaglobulinaemia
     Dosage: UNK
  2. GAMMAGARD S/D [Suspect]
     Active Substance: HUMAN IMMUNOGLOBULIN G
     Indication: Paediatric acute-onset neuropsychiatric syndrome
  3. GAMMAGARD S/D [Suspect]
     Active Substance: HUMAN IMMUNOGLOBULIN G
     Indication: Paediatric acute-onset neuropsychiatric syndrome
  4. GAMMAGARD LIQUID [Suspect]
     Active Substance: HUMAN IMMUNOGLOBULIN G
     Indication: Hypogammaglobulinaemia
     Dosage: 20 GRAM, Q4WEEKS
     Dates: start: 2019
  5. GAMMAGARD LIQUID [Suspect]
     Active Substance: HUMAN IMMUNOGLOBULIN G
     Indication: Paediatric acute-onset neuropsychiatric syndrome
  6. GAMMAGARD LIQUID [Suspect]
     Active Substance: HUMAN IMMUNOGLOBULIN G
     Indication: Paediatric acute-onset neuropsychiatric syndrome
  7. OCTAGAM IMMUNE GLOBULIN (HUMAN) [Suspect]
     Active Substance: HUMAN IMMUNOGLOBULIN G
     Indication: Product used for unknown indication
     Dosage: UNK
  8. AZITHROMYCIN [Concomitant]
     Active Substance: AZITHROMYCIN
     Dosage: UNK

REACTIONS (15)
  - Lyme disease [Recovering/Resolving]
  - Seizure [Recovering/Resolving]
  - Therapy non-responder [Unknown]
  - Depressed mood [Recovering/Resolving]
  - Limb discomfort [Unknown]
  - Insomnia [Unknown]
  - Neurological symptom [Unknown]
  - Feeling hot [Unknown]
  - Feeling abnormal [Recovering/Resolving]
  - Product quality issue [Unknown]
  - Product dispensing error [Unknown]
  - Screaming [Recovered/Resolved]
  - Histamine level increased [Recovered/Resolved]
  - Headache [Unknown]
  - Dyspnoea [Unknown]
